FAERS Safety Report 9116316 (Version 1)
Quarter: 2013Q1

REPORT INFORMATION
  Report Type: Report from Study
  Country: JP (occurrence: JP)
  Receive Date: 20130225
  Receipt Date: 20130225
  Transmission Date: 20140127
  Serious: Yes (Other)
  Sender: FDA-Public Use
  Company Number: JP-OTSUKA-JP-2013-10436

PATIENT
  Age: 89 Year
  Sex: Female
  Weight: 57 kg

DRUGS (29)
  1. DAIKENTYUTO [Concomitant]
     Dosage: UNK
     Route: 048
  2. LAXOBERON [Concomitant]
     Dosage: 30 GTT DROP(S), DAILY DOSE
     Route: 048
  3. LENDORMIN [Concomitant]
     Dosage: 0.25 MG MILLIGRAM(S), DAILY DOSE
     Route: 048
  4. DOBUPUM [Concomitant]
     Indication: CARDIAC FAILURE
     Dosage: 360 MG MILLIGRAM(S), DAILY DOSE
     Route: 042
  5. HEPARIN SODIUM [Concomitant]
     Indication: PROPHYLAXIS
     Dosage: UNK
     Route: 042
  6. SEISHOKU [Concomitant]
     Dosage: UNK
     Route: 042
  7. LASIX [Concomitant]
     Indication: CARDIAC FAILURE
     Dosage: 72 MG MILLIGRAM(S), DAILY DOSE
     Route: 042
  8. FULCALIQ [Concomitant]
     Indication: PROPHYLAXIS
     Dosage: UNK
     Route: 041
  9. PANTOL [Concomitant]
     Indication: PROPHYLAXIS
     Dosage: UNK
     Route: 041
  10. ELIETEN [Concomitant]
     Indication: PROPHYLAXIS
     Dosage: UNK
     Route: 041
  11. VOLVIX [Concomitant]
     Indication: PROPHYLAXIS
     Dosage: UNK
     Route: 041
  12. ELASPOL [Concomitant]
     Dosage: 288 MG MILLIGRAM(S), DAILY DOSE
     Route: 042
  13. DORMICUM [Concomitant]
     Indication: PROPHYLAXIS
     Dosage: UNK
     Route: 042
  14. LEPETAN [Concomitant]
     Indication: PROPHYLAXIS
     Dosage: UNK
     Route: 042
  15. HUMULIN R [Concomitant]
     Dosage: 24 IU, DAILY DOSE
     Route: 042
  16. HANP [Concomitant]
     Indication: CARDIAC FAILURE
     Dosage: 960 MCG, DAILY DOSE
     Route: 042
  17. FINIBAX [Concomitant]
     Dosage: 6 IU, DAILY DOSE
     Route: 042
  18. ZYVOX [Concomitant]
     Dosage: 600 MG MILLIGRAM(S), DAILY DOSE
     Route: 042
  19. VENILON [Concomitant]
     Dosage: 1000 MG MILLIGRAM(S), DAILY DOSE
     Route: 042
  20. MILRILA [Concomitant]
     Indication: CARDIAC FAILURE
     Dosage: 63.9 MG MILLIGRAM(S), DAILY DOSE
     Route: 042
  21. ONOACT [Concomitant]
     Dosage: 216 MG MILLIGRAM(S), DAILY DOSE
     Route: 042
  22. SAMSCA [Suspect]
     Indication: FLUID RETENTION
     Dosage: 7.5 MG MILLIGRAM(S), QAM
     Route: 048
     Dates: start: 20121206, end: 20121208
  23. SAMSCA [Suspect]
     Dosage: 15 MG MILLIGRAM(S), QAM
     Route: 048
     Dates: start: 20121209, end: 20121212
  24. BASSAMIN [Concomitant]
     Dosage: 81 MG MILLIGRAM(S), DAILY DOSE
     Route: 048
  25. PLAVIX [Concomitant]
     Dosage: 75 MG MILLIGRAM(S), DAILY DOSE
     Route: 048
  26. TAKEPRON [Concomitant]
     Indication: PROPHYLAXIS
     Dosage: 15 MG MILLIGRAM(S), DAILY DOSE
     Route: 048
  27. MICARDIS [Concomitant]
     Dosage: 0.5 DF DOSAGE FORM, DAILY DOSE
     Route: 048
  28. ARTIST [Concomitant]
     Indication: CARDIAC FAILURE
     Dosage: 1.25 MG MILLIGRAM(S), DAILY DOSE
     Route: 048
  29. GASMOTIN [Concomitant]
     Indication: PROPHYLAXIS
     Dosage: 15 MG MILLIGRAM(S), DAILY DOSE
     Route: 048

REACTIONS (3)
  - Platelet count decreased [Unknown]
  - Blood urea increased [Unknown]
  - Blood pressure increased [Recovered/Resolved]
